FAERS Safety Report 9146589 (Version 1)
Quarter: 2013Q1

REPORT INFORMATION
  Report Type: Spontaneous
  Country: GB (occurrence: GB)
  Receive Date: 20130307
  Receipt Date: 20130307
  Transmission Date: 20140127
  Serious: Yes (Other)
  Sender: FDA-Public Use
  Company Number: GB-UCBSA-079903

PATIENT
  Age: 76 Year
  Sex: Male

DRUGS (2)
  1. LEVETIRACETAM [Suspect]
     Dosage: 1125 (UNITS UNSPECIFIED)
  2. MIDAZOLAM [Concomitant]

REACTIONS (1)
  - Status epilepticus [Unknown]
